FAERS Safety Report 9312627 (Version 1)
Quarter: 2013Q2

REPORT INFORMATION
  Report Type: Spontaneous
  Country: DE (occurrence: DE)
  Receive Date: 20130528
  Receipt Date: 20130528
  Transmission Date: 20140414
  Serious: Yes (Other)
  Sender: FDA-Public Use
  Company Number: DE-GLAXOSMITHKLINE-D0079903A

PATIENT
  Age: 75 Year
  Sex: Male

DRUGS (12)
  1. PAROXETIN RATIOPHARM [Suspect]
     Dosage: 20MG PER DAY
     Route: 048
     Dates: start: 2011
  2. OTRIVEN [Concomitant]
     Route: 045
  3. IBEROGAST [Concomitant]
     Route: 065
  4. ASPIRIN PROTECT [Concomitant]
     Route: 065
  5. ZOPICLONE [Concomitant]
     Route: 065
  6. ZOCOR [Concomitant]
     Route: 065
  7. DIAZEPAM [Concomitant]
     Route: 065
  8. DOMPERIDON [Concomitant]
     Route: 065
  9. BISOPROLOL [Concomitant]
     Route: 065
  10. ANGIOTENSIN II ANTAGONIST [Concomitant]
     Route: 065
  11. ALLOPURINOL [Concomitant]
     Route: 065
  12. MARCUMAR [Concomitant]
     Route: 065

REACTIONS (4)
  - Serotonin syndrome [Not Recovered/Not Resolved]
  - Hyperhidrosis [Not Recovered/Not Resolved]
  - Hot flush [Not Recovered/Not Resolved]
  - Photophobia [Not Recovered/Not Resolved]
